FAERS Safety Report 5447419-8 (Version None)
Quarter: 2007Q3

REPORT INFORMATION
  Report Type: 
  Country: None (occurrence: None)
  Receive Date: 20070905
  Receipt Date: 20070821
  Transmission Date: 20080115
  Serious: Yes (Hospitalization)
  Sender: FDA-Public Use
  Company Number: CIP07001047

PATIENT
  Age: 67 Year
  Sex: Female

DRUGS (10)
  1. RISEDRONATE SODIUM [Suspect]
     Indication: OSTEOPOROSIS
     Dosage: 2.5MG DAILY, ORAL; 2.5 MG DAILY, ORAL
     Route: 048
     Dates: start: 20010827, end: 20070301
  2. RISEDRONATE SODIUM [Suspect]
     Indication: OSTEOPOROSIS
     Dosage: 2.5MG DAILY, ORAL; 2.5 MG DAILY, ORAL
     Route: 048
     Dates: start: 20070501, end: 20070523
  3. CANDESARTAN CILEXETIL [Suspect]
     Indication: HYPERTENSION
     Dosage: 8 MG, DAILY, ORAL; 2.8 MG,
     Route: 048
     Dates: start: 20010827, end: 20070301
  4. CANDESARTAN CILEXETIL [Suspect]
     Indication: HYPERTENSION
     Dosage: 8 MG, DAILY, ORAL; 2.8 MG,
     Route: 048
     Dates: start: 20070501, end: 20070523
  5. LIPITOR [Suspect]
     Indication: HYPERLIPIDAEMIA
     Dosage: 10 MG, DAILY, ORAL; 10MG
     Route: 048
     Dates: start: 20010827, end: 20070301
  6. LIPITOR [Suspect]
     Indication: HYPERLIPIDAEMIA
     Dosage: 10 MG, DAILY, ORAL; 10MG
     Route: 048
     Dates: start: 20070501, end: 20070523
  7. STOGAR            (LAFUTIDINE) [Suspect]
     Indication: GASTRITIS
     Dosage: 10 MG, ORAL; 10 MG
     Route: 048
     Dates: start: 20010827, end: 20070301
  8. STOGAR            (LAFUTIDINE) [Suspect]
     Indication: GASTRITIS
     Dosage: 10 MG, ORAL; 10 MG
     Route: 048
     Dates: start: 20070501, end: 20070523
  9. ALFAROL      (ALFACALIDOL) [Suspect]
     Indication: OSTEOPOROSIS
     Dosage: 1 UG, DAILY; 1 UG
     Dates: start: 20010827, end: 20070301
  10. ALFAROL      (ALFACALIDOL) [Suspect]
     Indication: OSTEOPOROSIS
     Dosage: 1 UG, DAILY; 1 UG
     Dates: start: 20070501, end: 20070523

REACTIONS (11)
  - ANTIMITOCHONDRIAL ANTIBODY POSITIVE [None]
  - ANTINUCLEAR ANTIBODY POSITIVE [None]
  - AUTOIMMUNE HEPATITIS [None]
  - BASOPHIL COUNT DECREASED [None]
  - HAEMATOCRIT NORMAL [None]
  - HAEMOGLOBIN DECREASED [None]
  - LYMPHOCYTE COUNT DECREASED [None]
  - MONOCYTE COUNT INCREASED [None]
  - NEUTROPHIL PERCENTAGE INCREASED [None]
  - RED BLOOD CELL COUNT DECREASED [None]
  - WHITE BLOOD CELL COUNT DECREASED [None]
